FAERS Safety Report 23942593 (Version 2)
Quarter: 2024Q2

REPORT INFORMATION
  Report Type: Spontaneous
  Country: FR (occurrence: None)
  Receive Date: 20240605
  Receipt Date: 20240618
  Transmission Date: 20240716
  Serious: Yes (Disabling)
  Sender: FDA-Public Use
  Company Number: 2023A270371

PATIENT
  Sex: Male

DRUGS (1)
  1. DAPAGLIFLOZIN [Suspect]
     Active Substance: DAPAGLIFLOZIN
     Route: 048

REACTIONS (3)
  - Pruritus [Recovered/Resolved]
  - Sleep disorder [Recovered/Resolved]
  - Psoriasis [Unknown]
